FAERS Safety Report 5569959-3 (Version None)
Quarter: 2007Q4

REPORT INFORMATION
  Report Type: 
  Country: None (occurrence: None)
  Receive Date: 20071218
  Receipt Date: 20071206
  Transmission Date: 20080405
  Serious: Yes (Hospitalization)
  Sender: FDA-Public Use
  Company Number: GXKR2007IT10516

PATIENT
  Age: 37 Year
  Sex: Male

DRUGS (1)
  1. CLOZAPINE [Suspect]
     Indication: SCHIZOPHRENIA, PARANOID TYPE
     Dosage: 500 MG, QD; 25 MG, ONCE2SDO
     Dates: start: 20060301

REACTIONS (6)
  - COLITIS MICROSCOPIC [None]
  - EXTRAPYRAMIDAL DISORDER [None]
  - FAECAL INCONTINENCE [None]
  - SALIVARY HYPERSECRETION [None]
  - THERAPY REGIMEN CHANGED [None]
  - TREATMENT FAILURE [None]
